FAERS Safety Report 8796359 (Version 2)
Quarter: 2012Q4

REPORT INFORMATION
  Report Type: 
  Country: TN (occurrence: TN)
  Receive Date: 20120919
  Receipt Date: 20121011
  Transmission Date: 20130627
  Serious: Yes (Congenital Anomaly)
  Sender: FDA-Public Use
  Company Number: TN-WATSON-2012-16089

PATIENT
  Sex: Female
  Weight: 2.5 kg

DRUGS (1)
  1. BETAMETHASONE [Suspect]
     Indication: FOETAL EXPOSURE DURING PREGNANCY
     Dosage: two 12 mg injection 24 hours part
     Route: 064

REACTIONS (6)
  - Hypertrophic cardiomyopathy [Recovered/Resolved]
  - Foetal exposure during pregnancy [Recovered/Resolved]
  - Caesarean section [None]
  - Premature baby [None]
  - Neonatal tachycardia [None]
  - Maternal drugs affecting foetus [None]
